FAERS Safety Report 6491278-1 (Version None)
Quarter: 2009Q4

REPORT INFORMATION
  Report Type: 
  Country: None (occurrence: None)
  Receive Date: 20091208
  Receipt Date: 20091130
  Transmission Date: 20100525
  Serious: Yes (Death, Other)
  Sender: FDA-Public Use
  Company Number: 2009US004234

PATIENT
  Age: 9 Year
  Sex: Male

DRUGS (6)
  1. PROGRAF [Suspect]
     Indication: PROPHYLAXIS AGAINST GRAFT VERSUS HOST DISEASE
     Dosage: O.O3 MG/KG, UID/QD, IV NOS
     Route: 042
  2. SIROLIMUS (RAPAMUNE) [Suspect]
     Indication: PROPHYLAXIS AGAINST GRAFT VERSUS HOST DISEASE
     Dosage: ORAL
     Route: 048
  3. METHOTREXATE [Suspect]
     Indication: PROPHYLAXIS AGAINST GRAFT VERSUS HOST DISEASE
     Dosage: 5 MG/M2, TOTAL DOSE, IV NOS; 5 MG/M2, TOTAL DOSE, IV NOS; 5 MG/M2, TOTAL DOSE, IV NOS
     Route: 042
  4. METHOTREXATE [Suspect]
     Indication: PROPHYLAXIS AGAINST GRAFT VERSUS HOST DISEASE
     Dosage: 5 MG/M2, TOTAL DOSE, IV NOS; 5 MG/M2, TOTAL DOSE, IV NOS; 5 MG/M2, TOTAL DOSE, IV NOS
     Route: 042
  5. METHOTREXATE [Suspect]
     Indication: PROPHYLAXIS AGAINST GRAFT VERSUS HOST DISEASE
     Dosage: 5 MG/M2, TOTAL DOSE, IV NOS; 5 MG/M2, TOTAL DOSE, IV NOS; 5 MG/M2, TOTAL DOSE, IV NOS
     Route: 042
  6. CYCLOPHOSPHAMIDE (CYCLOPHAOMIDE) [Suspect]
     Indication: TRANSPLANT
     Dosage: 60 MG/MG, UID/QD

REACTIONS (2)
  - ACUTE LYMPHOCYTIC LEUKAEMIA RECURRENT [None]
  - VENOOCCLUSIVE LIVER DISEASE [None]
